FAERS Safety Report 5664991-3 (Version None)
Quarter: 2008Q1

REPORT INFORMATION
  Report Type: 
  Country: None (occurrence: None)
  Receive Date: 20080314
  Receipt Date: 20080302
  Transmission Date: 20080703
  Serious: Yes (Death)
  Sender: FDA-Public Use
  Company Number: GR-PFIZER INC-2008019399

PATIENT
  Age: 71 Year
  Sex: Female
  Weight: 50 kg

DRUGS (2)
  1. SUNITINIB MALATE [Suspect]
     Indication: BREAST CANCER METASTATIC
     Dates: start: 20080121, end: 20080121
  2. TAXOL [Concomitant]
     Indication: BREAST CANCER METASTATIC
     Route: 042
     Dates: start: 20080121, end: 20080121

REACTIONS (2)
  - CEREBROVASCULAR ACCIDENT [None]
  - HEMIPLEGIA [None]
